FAERS Safety Report 9062478 (Version 1)
Quarter: 2013Q1

REPORT INFORMATION
  Report Type: Spontaneous
  Country: GB (occurrence: GB)
  Receive Date: 20130213
  Receipt Date: 20130213
  Transmission Date: 20140127
  Serious: Yes (Other)
  Sender: FDA-Public Use
  Company Number: GB-ACCORD-016297

PATIENT
  Age: 37 Year
  Sex: Male

DRUGS (3)
  1. IRINOTECAN HYDROCHLORIDE [Suspect]
     Indication: BRAIN NEOPLASM
     Route: 065
  2. LOMUSTINE [Suspect]
     Indication: BRAIN NEOPLASM
     Route: 065
  3. AVASTIN [Suspect]
     Indication: BRAIN NEOPLASM
     Route: 065

REACTIONS (4)
  - Agitation [Unknown]
  - Gait disturbance [Unknown]
  - Incontinence [Unknown]
  - Off label use [Unknown]
